FAERS Safety Report 11965209 (Version 1)
Quarter: 2016Q1

REPORT INFORMATION
  Report Type: Other
  Country: IN (occurrence: IN)
  Receive Date: 20160127
  Receipt Date: 20160127
  Transmission Date: 20160526
  Serious: Yes (Other)
  Sender: FDA-Public Use
  Company Number: IN-LUPIN PHARMACEUTICALS INC.-2016-00382

PATIENT
  Age: 40 Year
  Sex: Male

DRUGS (1)
  1. DICLOFENAC SUSTAINED RELEASE TABLETS [Suspect]
     Active Substance: DICLOFENAC
     Indication: PAIN
     Route: 048

REACTIONS (1)
  - Angioedema [Recovered/Resolved]
